FAERS Safety Report 7809823-X (Version None)
Quarter: 2011Q4

REPORT INFORMATION
  Report Type: 
  Country: None (occurrence: None)
  Receive Date: 20111012
  Receipt Date: 20111006
  Transmission Date: 20120403
  Serious: Yes (Death, Other)
  Sender: FDA-Public Use
  Company Number: VE-PFIZER INC-2011212264

PATIENT
  Age: 66 Year
  Sex: Female

DRUGS (1)
  1. LIPITOR [Suspect]
     Indication: HYPERCHOLESTEROLAEMIA
     Dosage: 40 MG, 1X/DAY
     Route: 048
     Dates: start: 20090101, end: 20100301

REACTIONS (2)
  - HEART VALVE REPLACEMENT [None]
  - INFARCTION [None]
